FAERS Safety Report 4701617-7 (Version None)
Quarter: 2005Q2

REPORT INFORMATION
  Report Type: 
  Country: None (occurrence: None)
  Receive Date: 20050627
  Receipt Date: 20050622
  Transmission Date: 20051028
  Serious: Yes (Hospitalization)
  Sender: FDA-Public Use
  Company Number: A044-002-005651

PATIENT
  Age: 56 Year
  Sex: Male

DRUGS (3)
  1. ARICEPT [Suspect]
     Indication: DEMENTIA ALZHEIMER'S TYPE
     Dosage: 10 MG, 1 IN 1 D, ORAL
     Route: 048
     Dates: start: 20050101, end: 20050601
  2. EGIBREN (SELEGILINE) [Concomitant]
  3. ZYPREXA [Concomitant]

REACTIONS (2)
  - GRAND MAL CONVULSION [None]
  - RHABDOMYOLYSIS [None]
